FAERS Safety Report 21292018 (Version 2)
Quarter: 2022Q3

REPORT INFORMATION
  Report Type: Spontaneous
  Country: CA (occurrence: CA)
  Receive Date: 20220904
  Receipt Date: 20220905
  Transmission Date: 20221026
  Serious: Yes (Death, Life-Threatening, Hospitalization)
  Sender: FDA-Public Use
  Company Number: CA-JNJFOC-20220851140

PATIENT

DRUGS (1)
  1. ACETAMINOPHEN [Suspect]
     Active Substance: ACETAMINOPHEN
     Indication: Product used for unknown indication
     Route: 065

REACTIONS (7)
  - Acute hepatic failure [Fatal]
  - Seizure [Fatal]
  - Arrhythmia [Fatal]
  - Gastrointestinal haemorrhage [Fatal]
  - Brain oedema [Fatal]
  - Intracranial pressure increased [Fatal]
  - Respiratory failure [Fatal]
